FAERS Safety Report 6125491-X (Version None)
Quarter: 2009Q1

REPORT INFORMATION
  Report Type: 
  Country: None (occurrence: None)
  Receive Date: 20090319
  Receipt Date: 20090319
  Transmission Date: 20090719
  Serious: Yes (Hospitalization)
  Sender: FDA-Public Use
  Company Number: None

PATIENT
  Age: 14 Month
  Sex: Male
  Weight: 9.3622 kg

DRUGS (2)
  1. SYNAGIS [Suspect]
     Indication: ANTIVIRAL PROPHYLAXIS
     Dosage: 100MG  ONCE MONTHLY IM
     Route: 030
     Dates: start: 20081111, end: 20090312
  2. SYNAGIS [Suspect]
     Indication: ANTIVIRAL PROPHYLAXIS
     Dosage: 40 MG ONCE MONTHLY IM
     Route: 030
     Dates: start: 20081111, end: 20090312

REACTIONS (2)
  - CONVULSION [None]
  - PYREXIA [None]
